FAERS Safety Report 10354301 (Version 1)
Quarter: 2014Q3

REPORT INFORMATION
  Report Type: Spontaneous
  Country: US (occurrence: None)
  Receive Date: 20140729
  Receipt Date: 20140729
  Transmission Date: 20150326
  Serious: No
  Sender: FDA-Public Use
  Company Number: None

PATIENT
  Age: 84 Year
  Sex: Male
  Weight: 66.68 kg

DRUGS (9)
  1. CARDVEDIOL [Concomitant]
  2. PRAVASTATIN [Concomitant]
     Active Substance: PRAVASTATIN\PRAVASTATIN SODIUM
  3. FLOMAX [Concomitant]
     Active Substance: TAMSULOSIN HYDROCHLORIDE
  4. PEPCID [Concomitant]
     Active Substance: FAMOTIDINE
  5. PROSCAR [Concomitant]
     Active Substance: FINASTERIDE
  6. PLAVIX [Concomitant]
     Active Substance: CLOPIDOGREL BISULFATE
  7. PLAVIX [Concomitant]
     Active Substance: CLOPIDOGREL BISULFATE
  8. TRAMADOL 50MG TABLETS TRAMADOL [Suspect]
     Active Substance: TRAMADOL
     Indication: BACK PAIN
     Route: 048
     Dates: start: 20140310, end: 20140317
  9. CENTRUM SILVER VITAMINS [Concomitant]

REACTIONS (6)
  - Nervousness [None]
  - Anxiety [None]
  - Insomnia [None]
  - Decreased appetite [None]
  - Agitation [None]
  - Pollakiuria [None]

NARRATIVE: CASE EVENT DATE: 20140311
